FAERS Safety Report 14172499 (Version 1)
Quarter: 2017Q4

REPORT INFORMATION
  Report Type: Spontaneous
  Country: US (occurrence: US)
  Receive Date: 20171108
  Receipt Date: 20171108
  Transmission Date: 20180321
  Serious: No
  Sender: FDA-Public Use
  Company Number: None

PATIENT
  Sex: Female
  Weight: 63 kg

DRUGS (1)
  1. OXYCODONE AND ACETAMINOPHEN [Suspect]
     Active Substance: ACETAMINOPHEN\OXYCODONE HYDROCHLORIDE
     Indication: CHRONIC DISEASE
     Dosage: ?          QUANTITY:1 TABLET(S);?
     Route: 048
     Dates: start: 20170911, end: 20171006

REACTIONS (5)
  - Abdominal pain upper [None]
  - Headache [None]
  - Hypertension [None]
  - Pancreatitis [None]
  - Fatigue [None]

NARRATIVE: CASE EVENT DATE: 20170918
